FAERS Safety Report 11867820 (Version 1)
Quarter: 2015Q4

REPORT INFORMATION
  Report Type: Spontaneous
  Country: FR (occurrence: FR)
  Receive Date: 20151224
  Receipt Date: 20151224
  Transmission Date: 20160305
  Serious: Yes (Congenital Anomaly, Other)
  Sender: FDA-Public Use
  Company Number: FR-JNJFOC-20151213696

PATIENT
  Age: 0 Year
  Sex: Female
  Weight: 2.76 kg

DRUGS (2)
  1. EPITOMAX [Suspect]
     Active Substance: TOPIRAMATE
     Indication: VASCULAR PAIN
     Dosage: MOTHER^S DOSING
     Route: 064
     Dates: end: 2013
  2. EPITOMAX [Suspect]
     Active Substance: TOPIRAMATE
     Indication: MIGRAINE
     Dosage: MOTHER^S DOSING
     Route: 064
     Dates: end: 2013

REACTIONS (2)
  - Cleft lip [Recovering/Resolving]
  - Foetal exposure during pregnancy [Recovered/Resolved]

NARRATIVE: CASE EVENT DATE: 20130702
